FAERS Safety Report 5131650-5 (Version None)
Quarter: 2006Q4

REPORT INFORMATION
  Report Type: 
  Country: None (occurrence: None)
  Receive Date: 20061016
  Receipt Date: 20060929
  Transmission Date: 20070319
  Serious: Yes (Hospitalization)
  Sender: FDA-Public Use
  Company Number: DSA_28779_2006

PATIENT
  Age: 37 Year
  Sex: Female

DRUGS (3)
  1. LORAZEPAM [Suspect]
     Dates: start: 20060928, end: 20060928
  2. ATOSIL                                (PROMETHAZINE HCL) [Suspect]
     Dosage: 10 TAB ONCE PO
     Route: 048
     Dates: start: 20060928, end: 20060928
  3. FLUOXETINE [Suspect]
     Dosage: 360 MG ONCE PO
     Route: 048
     Dates: start: 20060928, end: 20060928

REACTIONS (5)
  - AREFLEXIA [None]
  - MULTIPLE DRUG OVERDOSE [None]
  - RESPIRATORY FAILURE [None]
  - SOMNOLENCE [None]
  - SUICIDE ATTEMPT [None]
